FAERS Safety Report 23526657 (Version 2)
Quarter: 2024Q1

REPORT INFORMATION
  Report Type: Spontaneous
  Country: US (occurrence: US)
  Receive Date: 20240215
  Receipt Date: 20240226
  Transmission Date: 20240410
  Serious: No
  Sender: FDA-Public Use
  Company Number: US-ABBVIE-5638396

PATIENT
  Sex: Male

DRUGS (4)
  1. CYCLOSPORINE [Suspect]
     Active Substance: CYCLOSPORINE
     Indication: Product used for unknown indication
     Dosage: OPHTHALMIC EMULSION, 0.5MG/ML ?FORM STRENGTH: 0.05 PERCENT
     Route: 047
  2. CYCLOSPORINE [Suspect]
     Active Substance: CYCLOSPORINE
     Dosage: OPHTHALMIC EMULSION, 0.5MG/ML ?FORM STRENGTH: 0.05 PERCENT
     Route: 047
  3. CYCLOSPORINE [Suspect]
     Active Substance: CYCLOSPORINE
     Dosage: OPHTHALMIC EMULSION, 0.5MG/ML ?FORM STRENGTH: 0.05 PERCENT
     Route: 047
  4. CYCLOSPORINE [Suspect]
     Active Substance: CYCLOSPORINE
     Dosage: OPHTHALMIC EMULSION, 0.5MG/ML ?FORM STRENGTH: 0.05 PERCENT
     Route: 047

REACTIONS (2)
  - Eye irritation [Unknown]
  - Drug ineffective [Unknown]

NARRATIVE: CASE EVENT DATE: 20240203
